FAERS Safety Report 6491118-0 (Version None)
Quarter: 2009Q4

REPORT INFORMATION
  Report Type: 
  Country: None (occurrence: None)
  Receive Date: 20091208
  Receipt Date: 20091125
  Transmission Date: 20100525
  Serious: Yes (Death, Hospitalization)
  Sender: FDA-Public Use
  Company Number: 2009AC000438

PATIENT
  Sex: Male

DRUGS (1)
  1. DIGOXIN [Suspect]
     Dosage: 0.25 MG; PO
     Route: 048

REACTIONS (12)
  - ASTHENIA [None]
  - ATRIOVENTRICULAR BLOCK FIRST DEGREE [None]
  - BRADYCARDIA [None]
  - DECREASED APPETITE [None]
  - FATIGUE [None]
  - HYPERKALAEMIA [None]
  - HYPOTENSION [None]
  - NAUSEA [None]
  - RENAL FAILURE [None]
  - THERAPEUTIC AGENT TOXICITY [None]
  - VISION BLURRED [None]
  - VOMITING [None]
